FAERS Safety Report 8404332-1 (Version None)
Quarter: 2012Q2

REPORT INFORMATION
  Report Type: 
  Country: None (occurrence: None)
  Receive Date: 20120601
  Receipt Date: 20120523
  Transmission Date: 20120825
  Serious: Yes (Hospitalization)
  Sender: FDA-Public Use
  Company Number: JP-VERTEX PHARMACEUTICALS INC.-AE-2012-007782

PATIENT
  Age: 51 Year
  Sex: Male

DRUGS (3)
  1. TELAVIC (TELAPREVIR) [Suspect]
     Route: 048
     Dates: start: 20120418, end: 20120522
  2. REBETOL [Concomitant]
     Route: 048
     Dates: start: 20120418
  3. PEG-INTRON [Concomitant]
     Route: 051
     Dates: start: 20120418

REACTIONS (1)
  - RENAL DISORDER [None]
